FAERS Safety Report 17883629 (Version 1)
Quarter: 2020Q2

REPORT INFORMATION
  Report Type: Spontaneous
  Country: US (occurrence: US)
  Receive Date: 20200610
  Receipt Date: 20200610
  Transmission Date: 20200714
  Serious: Yes (Other)
  Sender: FDA-Public Use
  Company Number: None

PATIENT
  Age: 28 Year
  Sex: Male
  Weight: 101.1 kg

DRUGS (4)
  1. REMDESIVIR. [Suspect]
     Active Substance: REMDESIVIR
     Indication: COVID-19
     Route: 040
     Dates: start: 20200603, end: 20200607
  2. CONVALESCENT PLASMA [Concomitant]
     Active Substance: HUMAN PLASMA
     Dates: start: 20200604, end: 20200604
  3. REMDESIVIR. [Suspect]
     Active Substance: REMDESIVIR
     Indication: COVID-19
     Dosage: ?          OTHER FREQUENCY:ONCE;?
     Route: 040
     Dates: start: 20200606, end: 20200606
  4. TOCILIZUMAB. [Concomitant]
     Active Substance: TOCILIZUMAB
     Dates: start: 20200603, end: 20200603

REACTIONS (5)
  - Alanine aminotransferase increased [None]
  - Respiratory failure [None]
  - Aspartate aminotransferase increased [None]
  - Transaminases increased [None]
  - Myocarditis [None]

NARRATIVE: CASE EVENT DATE: 20200608
